FAERS Safety Report 16416351 (Version 1)
Quarter: 2019Q2

REPORT INFORMATION
  Report Type: Spontaneous
  Country: US (occurrence: US)
  Receive Date: 20190611
  Receipt Date: 20190611
  Transmission Date: 20190711
  Serious: Yes (Hospitalization)
  Sender: FDA-Public Use
  Company Number: US-STRONGBRIDGE BIOPHARMA-2019-STR-000140

PATIENT
  Age: 22 Year
  Sex: Male

DRUGS (1)
  1. KEVEYIS [Suspect]
     Active Substance: DICHLORPHENAMIDE
     Indication: FAMILIAL PERIODIC PARALYSIS
     Dosage: 50 MG, BID
     Route: 048
     Dates: start: 20190529

REACTIONS (8)
  - Polyuria [Recovering/Resolving]
  - Muscular weakness [Recovering/Resolving]
  - Paraesthesia [Recovering/Resolving]
  - Dysgeusia [Recovering/Resolving]
  - Blood potassium decreased [Unknown]
  - Disease recurrence [Recovering/Resolving]
  - Paraesthesia oral [Recovering/Resolving]
  - Diarrhoea [Recovering/Resolving]

NARRATIVE: CASE EVENT DATE: 20190529
